FAERS Safety Report 25356564 (Version 1)
Quarter: 2025Q2

REPORT INFORMATION
  Report Type: Report from Study
  Country: US (occurrence: US)
  Receive Date: 20250526
  Receipt Date: 20250526
  Transmission Date: 20250716
  Serious: No
  Sender: STALLERGENES
  Company Number: US-STALCOR-2025-AER-00956

PATIENT
  Age: 4 Year
  Sex: Male
  Weight: 13.9 kg

DRUGS (1)
  1. PALFORZIA [Suspect]
     Active Substance: PEANUT
     Indication: Food allergy
     Dosage: REACTIVE DOSE IDE (0.5-6MG), AE OCCURRED AFTER COMPLETION OF 6MG INCREMENT DOSE
     Route: 048
     Dates: start: 20250326

REACTIONS (3)
  - Erythema [Unknown]
  - Urticaria [Not Recovered/Not Resolved]
  - Cough [Unknown]

NARRATIVE: CASE EVENT DATE: 20250326
